FAERS Safety Report 18867421 (Version 2)
Quarter: 2021Q1

REPORT INFORMATION
  Report Type: Report from Study
  Country: HR (occurrence: HR)
  Receive Date: 20210209
  Receipt Date: 20210211
  Transmission Date: 20210420
  Serious: Yes (Death)
  Sender: FDA-Public Use
  Company Number: HR-PFIZER INC-2021125320

PATIENT
  Age: 64 Year
  Sex: Female

DRUGS (9)
  1. CONCOR [Concomitant]
     Active Substance: BISOPROLOL FUMARATE
     Dosage: 5 MG, 2X/DAY
  2. TEOLIN [Concomitant]
     Active Substance: THEOPHYLLINE
     Dosage: 1 DF, 2X/DAY
  3. LORLATINIB [Suspect]
     Active Substance: LORLATINIB
     Indication: LUNG ADENOCARCINOMA
     Dosage: 25 MG, 4X/DAY
     Dates: start: 202002
  4. BRALTUS [Concomitant]
     Active Substance: TIOTROPIUM BROMIDE
     Dosage: 1 DF, 1X/DAY (1X1 INHALATION)
  5. OXYGEN. [Concomitant]
     Active Substance: OXYGEN
     Dosage: 3 L/MIN
  6. CLEXANE [Concomitant]
     Active Substance: ENOXAPARIN SODIUM
     Dosage: 0.6 ML, 2X/DAY
     Route: 058
  7. FURSEMID [FUROSEMIDE SODIUM] [Concomitant]
     Active Substance: FUROSEMIDE SODIUM
     Dosage: 1 DF, EVERY OTHER DAY
  8. KALINOR [POTASSIUM CHLORIDE] [Concomitant]
     Active Substance: POTASSIUM CHLORIDE
     Dosage: 1/2 EFFERVESCENT
  9. NORMABEL [Concomitant]
     Active Substance: DIAZEPAM
     Dosage: 5 MG, 2X/DAY

REACTIONS (1)
  - Neoplasm progression [Fatal]

NARRATIVE: CASE EVENT DATE: 20210116
